FAERS Safety Report 4698363-5 (Version None)
Quarter: 2005Q2

REPORT INFORMATION
  Report Type: 
  Country: None (occurrence: None)
  Receive Date: 20050623
  Receipt Date: 20050613
  Transmission Date: 20051028
  Serious: Yes (Disabling)
  Sender: FDA-Public Use
  Company Number: JP-ROCHE-407732

PATIENT
  Age: 11 Month
  Sex: Male

DRUGS (1)
  1. TAMIFLU [Suspect]
     Indication: INFLUENZA
     Route: 048
     Dates: start: 20050325, end: 20050327

REACTIONS (3)
  - CARDIAC ARREST [None]
  - ENCEPHALOPATHY [None]
  - RESPIRATORY ARREST [None]
